FAERS Safety Report 5816190-X (Version None)
Quarter: 2008Q3

REPORT INFORMATION
  Report Type: 
  Country: None (occurrence: None)
  Receive Date: 20080721
  Receipt Date: 20080710
  Transmission Date: 20090109
  Serious: Yes (Other)
  Sender: FDA-Public Use
  Company Number: B0360127A

PATIENT
  Age: 42 Year
  Sex: Female

DRUGS (6)
  1. PAROXETINE HCL [Suspect]
     Indication: DEPRESSION
     Route: 065
     Dates: start: 19980330
  2. DIAZEPAM [Concomitant]
     Dates: start: 19870821
  3. CIPRAMIL [Concomitant]
     Dates: start: 20040803
  4. LUSTRAL [Concomitant]
     Dates: start: 20020718
  5. EFFEXOR [Concomitant]
     Dates: start: 20030303
  6. OESTRADIOL [Concomitant]

REACTIONS (16)
  - ADVERSE DRUG REACTION [None]
  - DEPRESSED MOOD [None]
  - DIZZINESS [None]
  - DRUG WITHDRAWAL SYNDROME [None]
  - EARLY MORNING AWAKENING [None]
  - FEAR [None]
  - HEADACHE [None]
  - HYPERHIDROSIS [None]
  - IMPAIRED WORK ABILITY [None]
  - INSOMNIA [None]
  - NAUSEA [None]
  - NIGHTMARE [None]
  - PARANOIA [None]
  - PREMENSTRUAL SYNDROME [None]
  - SUICIDAL IDEATION [None]
  - TREMOR [None]
